FAERS Safety Report 23237989 (Version 1)
Quarter: 2023Q4

REPORT INFORMATION
  Report Type: Spontaneous
  Country: US (occurrence: US)
  Receive Date: 20231129
  Receipt Date: 20231129
  Transmission Date: 20240110
  Serious: Yes (Hospitalization, Other)
  Sender: FDA-Public Use
  Company Number: US-AMGEN-USASP2023210496

PATIENT
  Age: 69 Year
  Sex: Male

DRUGS (2)
  1. RITUXIMAB [Suspect]
     Active Substance: RITUXIMAB
     Indication: Glomerulonephritis rapidly progressive
     Dosage: UNK
     Route: 065
  2. METHYLPREDNISOLONE [Concomitant]
     Active Substance: METHYLPREDNISOLONE
     Indication: Eosinophilic myocarditis
     Dosage: UNK
     Route: 065

REACTIONS (7)
  - Pneumonia klebsiella [Unknown]
  - Pneumonia pseudomonal [Unknown]
  - Infection [Unknown]
  - Eosinophilic granulomatosis with polyangiitis [Unknown]
  - Glomerular filtration rate decreased [Unknown]
  - Ill-defined disorder [Unknown]
  - Off label use [Unknown]
